FAERS Safety Report 7721233-2 (Version None)
Quarter: 2011Q3

REPORT INFORMATION
  Report Type: 
  Country: None (occurrence: None)
  Receive Date: 20110830
  Receipt Date: 20110830
  Transmission Date: 20111222
  Serious: Yes (Hospitalization, Disabling)
  Sender: FDA-Public Use
  Company Number: None

PATIENT
  Sex: Female
  Weight: 77.3 kg

DRUGS (2)
  1. ZOCOR [Suspect]
     Indication: POLYMYOSITIS
     Dosage: 200 MG DAILY BY MOUTH
     Route: 048
     Dates: start: 20100601, end: 20110101
  2. DIFLUCAN [Suspect]
     Indication: RHABDOMYOLYSIS
     Dosage: 40 MG DAILY BY MOUTH
     Route: 048
     Dates: start: 20100601, end: 20110101

REACTIONS (3)
  - DRUG INTERACTION [None]
  - MUSCLE ATROPHY [None]
  - ABASIA [None]
